FAERS Safety Report 6201733-7 (Version None)
Quarter: 2009Q2

REPORT INFORMATION
  Report Type: 
  Country: None (occurrence: None)
  Receive Date: 20090518
  Receipt Date: 20090406
  Transmission Date: 20091009
  Serious: No
  Sender: FDA-Public Use
  Company Number: WAES 0904USA00867

PATIENT
  Age: 64 Year
  Sex: Male

DRUGS (12)
  1. JANUVIA [Suspect]
     Indication: TYPE 2 DIABETES MELLITUS
     Dosage: 100 MG/DAILY/PO
     Route: 048
     Dates: start: 20080701
  2. JANUVIA [Suspect]
  3. ACTOS [Concomitant]
  4. CRESTOR [Concomitant]
  5. PREVACID [Concomitant]
  6. TRICOR [Concomitant]
  7. ASCORBIC ACID [Concomitant]
  8. ATENOLOL [Concomitant]
  9. GLYBURIDE [Concomitant]
  10. IRON [Concomitant]
  11. LISINOPRIL [Concomitant]
  12. VITAMIN D [Concomitant]

REACTIONS (7)
  - BLOOD GLUCOSE INCREASED [None]
  - CONSTIPATION [None]
  - COUGH [None]
  - HEADACHE [None]
  - NASAL CONGESTION [None]
  - OROPHARYNGEAL PAIN [None]
  - UPPER RESPIRATORY TRACT CONGESTION [None]
